FAERS Safety Report 4705517-8 (Version None)
Quarter: 2005Q2

REPORT INFORMATION
  Report Type: 
  Country: None (occurrence: None)
  Receive Date: 20050628
  Receipt Date: 20050615
  Transmission Date: 20051028
  Serious: Yes (Other)
  Sender: FDA-Public Use
  Company Number: FR_050506421

PATIENT
  Age: 66 Year
  Sex: Male
  Weight: 86 kg

DRUGS (3)
  1. GEMZAR [Suspect]
     Indication: SMALL CELL LUNG CANCER STAGE UNSPECIFIED
     Dosage: 1200 MG/M2/1 OTHER
     Dates: start: 20050114, end: 20050121
  2. EPREX [Concomitant]
  3. .. [Concomitant]

REACTIONS (5)
  - LEUKOCYTOCLASTIC VASCULITIS [None]
  - NEUTROPENIA [None]
  - PURPURA [None]
  - THROMBOCYTOPENIA [None]
  - URTICARIA [None]
